FAERS Safety Report 8880470 (Version 1)
Quarter: 2012Q4

REPORT INFORMATION
  Report Type: 
  Country: SE (occurrence: SE)
  Receive Date: 20121101
  Receipt Date: 20121101
  Transmission Date: 20130627
  Serious: Yes (Hospitalization)
  Sender: FDA-Public Use
  Company Number: SE-NAPPMUNDI-GBR-2012-0011862

PATIENT
  Age: 85 Year
  Sex: Female

DRUGS (14)
  1. OXYCONTIN [Suspect]
     Indication: SPINAL COMPRESSION FRACTURE
     Dosage: 10 mg, bid
     Route: 048
  2. OXYCONTIN [Suspect]
     Indication: BACK PAIN
  3. OXYCONTIN [Suspect]
     Indication: SPINAL COMPRESSION FRACTURE
     Dosage: 5 mg, bid
     Route: 048
  4. OXYCONTIN [Suspect]
     Indication: BACK PAIN
  5. GABAPENTIN [Suspect]
     Indication: SPINAL COMPRESSION FRACTURE
  6. DETRUSITOL [Concomitant]
  7. LAKTULOS [Concomitant]
  8. ALENDRONAT [Concomitant]
  9. KARVEDILOL ACTAVIS [Concomitant]
  10. PANODIL [Concomitant]
  11. OVESTERIN [Concomitant]
  12. TROMBYL [Concomitant]
  13. ACETYLCYSTEIN [Concomitant]
  14. KALCIDON [Concomitant]

REACTIONS (3)
  - Muscular weakness [Unknown]
  - Fatigue [Unknown]
  - Amnesia [Not Recovered/Not Resolved]
